FAERS Safety Report 20597994 (Version 1)
Quarter: 2022Q1

REPORT INFORMATION
  Report Type: Spontaneous
  Country: US (occurrence: US)
  Receive Date: 20220315
  Receipt Date: 20220315
  Transmission Date: 20220423
  Serious: No
  Sender: FDA-Public Use
  Company Number: US-ELI_LILLY_AND_COMPANY-US202203003846

PATIENT
  Age: 43 Year
  Sex: Male

DRUGS (3)
  1. RETEVMO [Suspect]
     Active Substance: SELPERCATINIB
     Indication: Non-small cell lung cancer
     Dosage: 160 MG, BID
     Route: 065
  2. RETEVMO [Suspect]
     Active Substance: SELPERCATINIB
     Dosage: 80 MG, BID
     Route: 065
  3. RETEVMO [Suspect]
     Active Substance: SELPERCATINIB
     Dosage: 160 UNK
     Route: 065

REACTIONS (1)
  - Aspartate aminotransferase increased [Recovered/Resolved]
